FAERS Safety Report 14297053 (Version 4)
Quarter: 2018Q1

REPORT INFORMATION
  Report Type: Spontaneous
  Country: HU (occurrence: HU)
  Receive Date: 20171218
  Receipt Date: 20180322
  Transmission Date: 20180509
  Serious: Yes (Death, Hospitalization, Other)
  Sender: FDA-Public Use
  Company Number: HU-PFIZER INC-2017521325

PATIENT
  Age: 58 Year
  Sex: Female

DRUGS (31)
  1. METOPROLOL SUCCINATE. [Suspect]
     Active Substance: METOPROLOL SUCCINATE
     Dosage: UNK
  2. MINOXIDIL. [Suspect]
     Active Substance: MINOXIDIL
     Dosage: 0-5-5 MG
     Dates: start: 20130419
  3. URAPIDIL [Suspect]
     Active Substance: URAPIDIL
     Indication: HYPERTENSION
     Dosage: 2X30 MG
     Route: 065
     Dates: start: 20040223
  4. ENALAPRIL HCT [Suspect]
     Active Substance: ENALAPRIL\HYDROCHLOROTHIAZIDE
     Indication: HYPERTENSION
     Dosage: 10/6.25-10/6.25-20/12,5 MG
     Route: 065
     Dates: start: 20040223
  5. ENALAPRIL HCT [Suspect]
     Active Substance: ENALAPRIL\HYDROCHLOROTHIAZIDE
     Dosage: 10/6.25-0-30/18.75
     Dates: start: 20090220
  6. AMLODIPINE BESILATE [Suspect]
     Active Substance: AMLODIPINE BESYLATE
     Dosage: 1X7.5 MG
     Dates: start: 20050203
  7. MINOXIDIL. [Suspect]
     Active Substance: MINOXIDIL
     Dosage: 0-1.25-1.25 MG
     Dates: start: 20130803
  8. PERINDOPRIL/INDAPAMIDE [Suspect]
     Active Substance: INDAPAMIDE\PERINDOPRIL
     Indication: HYPERTENSION
     Dosage: 2X0.625/2.5
     Route: 065
     Dates: start: 20140403
  9. URAPIDIL [Suspect]
     Active Substance: URAPIDIL
     Dosage: 1X90 MG
     Dates: start: 20050829
  10. URAPIDIL [Suspect]
     Active Substance: URAPIDIL
     Dosage: 0-30-120 MG
     Dates: start: 20091215
  11. URAPIDIL [Suspect]
     Active Substance: URAPIDIL
     Dosage: 1X60 MG
     Dates: start: 20121215
  12. NIFEDIPINE. [Suspect]
     Active Substance: NIFEDIPINE
     Indication: HYPERTENSION
     Dosage: 1 PUFF AS NEEDED
     Route: 065
     Dates: start: 20090220, end: 20120321
  13. URAPIDIL [Suspect]
     Active Substance: URAPIDIL
     Dosage: 3X30 MG
     Dates: start: 20120403
  14. DOXAZOSIN MESILATE [Suspect]
     Active Substance: DOXAZOSIN MESYLATE
     Dosage: 2X2 MG
     Route: 065
     Dates: start: 20091215, end: 20110224
  15. MINOXIDIL. [Suspect]
     Active Substance: MINOXIDIL
     Indication: HYPERTENSION
     Dosage: 0-2.5-2.5 MG
     Dates: start: 20110104
  16. URAPIDIL [Suspect]
     Active Substance: URAPIDIL
     Dosage: 30-0-60 MG
     Dates: start: 20090220
  17. AMLODIPINE BESILATE [Suspect]
     Active Substance: AMLODIPINE BESYLATE
     Dosage: 2X5 MG
     Dates: start: 20140403
  18. DOXAZOSIN MESILATE [Suspect]
     Active Substance: DOXAZOSIN MESYLATE
     Indication: HYPERTENSION
     Dosage: 1X4 MG
     Route: 065
     Dates: start: 20040325
  19. MINOXIDIL. [Suspect]
     Active Substance: MINOXIDIL
     Dosage: 0-1.25-1.25 MG
     Dates: start: 20110224
  20. URAPIDIL [Suspect]
     Active Substance: URAPIDIL
     Dosage: 0-30-60 MG
     Dates: start: 20110104
  21. METOPROLOL SUCCINATE. [Suspect]
     Active Substance: METOPROLOL SUCCINATE
     Indication: HYPERTENSION
     Dosage: 2X50 MG
     Route: 065
     Dates: start: 20040223
  22. URAPIDIL [Suspect]
     Active Substance: URAPIDIL
     Dosage: 2X60 MG
     Dates: start: 20050112
  23. ENALAPRIL HCT [Suspect]
     Active Substance: ENALAPRIL\HYDROCHLOROTHIAZIDE
     Dosage: 2X20/12.5
     Dates: start: 20091215, end: 20131213
  24. NITROGLYCERIN. [Suspect]
     Active Substance: NITROGLYCERIN
     Indication: HYPERTENSION
     Dosage: 1X0.5 MG
     Route: 065
     Dates: start: 20090220, end: 20140403
  25. AMLODIPINE BESILATE [Suspect]
     Active Substance: AMLODIPINE BESYLATE
     Indication: HYPERTENSION
     Dosage: 1X5 MG
     Dates: start: 20040223
  26. AMLODIPINE BESILATE [Suspect]
     Active Substance: AMLODIPINE BESYLATE
     Dosage: 5-0-5 MG
     Dates: start: 20061127
  27. AMLODIPINE BESILATE [Suspect]
     Active Substance: AMLODIPINE BESYLATE
     Dosage: 1X7.5 MG
     Dates: start: 20070208
  28. CARVEDILOL. [Suspect]
     Active Substance: CARVEDILOL
     Indication: HYPERTENSION
     Dosage: 2X12.5 MG
     Route: 065
     Dates: start: 20050923, end: 20140403
  29. METOPROLOL SUCCINATE. [Suspect]
     Active Substance: METOPROLOL SUCCINATE
     Dosage: 50-0-25 MG
     Dates: start: 20050112, end: 20050829
  30. MINOXIDIL. [Suspect]
     Active Substance: MINOXIDIL
     Dosage: 0-5-5 MG
     Dates: start: 20131213
  31. URAPIDIL [Suspect]
     Active Substance: URAPIDIL
     Dosage: 0-30-90 MG
     Dates: start: 20090421

REACTIONS (2)
  - Cerebrovascular accident [Fatal]
  - Drug ineffective [Unknown]

NARRATIVE: CASE EVENT DATE: 2014
